FAERS Safety Report 23146152 (Version 1)
Quarter: 2023Q4

REPORT INFORMATION
  Report Type: Spontaneous
  Country: DE (occurrence: DE)
  Receive Date: 20231104
  Receipt Date: 20231104
  Transmission Date: 20240110
  Serious: Yes (Other)
  Sender: FDA-Public Use
  Company Number: DE-BRISTOL-MYERS SQUIBB COMPANY-2023-152091

PATIENT
  Age: 57 Year
  Sex: Female

DRUGS (4)
  1. BORTEZOMIB [Suspect]
     Active Substance: BORTEZOMIB
     Indication: Plasma cell myeloma
     Dosage: UNK (DOSE : UNAV. FREQ : UNAV)
     Route: 065
     Dates: start: 201512, end: 201612
  2. DEXAMETHASONE [Suspect]
     Active Substance: DEXAMETHASONE
     Indication: Plasma cell myeloma
     Dosage: UNK (DOSE : UNAV. FREQ : UNAV)
     Route: 065
     Dates: start: 201512, end: 201612
  3. PANOBINOSTAT [Suspect]
     Active Substance: PANOBINOSTAT
     Indication: Plasma cell myeloma
     Dosage: UNK (DOSE : UNAV. FREQ : UNAV.)
     Route: 065
     Dates: start: 201512, end: 201612
  4. REVLIMID [Suspect]
     Active Substance: LENALIDOMIDE
     Indication: Plasma cell myeloma
     Dosage: UNK (DOSE : UNAV. FREQ : UNAV.)
     Route: 065
     Dates: start: 201512, end: 201612

REACTIONS (1)
  - Plasma cell myeloma [Unknown]
